FAERS Safety Report 5533834-0 (Version None)
Quarter: 2007Q4

REPORT INFORMATION
  Report Type: 
  Country: None (occurrence: None)
  Receive Date: 20071129
  Receipt Date: 20071116
  Transmission Date: 20080405
  Serious: Yes (Hospitalization, Disabling, Other)
  Sender: FDA-Public Use
  Company Number: 164168ISR

PATIENT
  Age: 54 Year
  Sex: Female

DRUGS (2)
  1. PREDNISOLONE [Suspect]
     Dosage: 7.5 MG ORAL
     Route: 048
  2. LEFLUNOMIDE [Suspect]
     Dosage: ORAL
     Route: 048

REACTIONS (2)
  - HERPES SIMPLEX [None]
  - NECROTISING RETINITIS [None]
